FAERS Safety Report 5215926-9 (Version None)
Quarter: 2007Q1

REPORT INFORMATION
  Report Type: 
  Country: None (occurrence: None)
  Receive Date: 20070123
  Receipt Date: 20070112
  Transmission Date: 20070707
  Serious: Yes (Disabling, Other)
  Sender: FDA-Public Use
  Company Number: GB-ELI_LILLY_AND_COMPANY-GB200701002425

PATIENT
  Age: 77 Year
  Sex: Female

DRUGS (6)
  1. FORTEO [Suspect]
     Dosage: 20 UG, UNK
     Route: 058
     Dates: start: 20060211
  2. ATENOLOL [Concomitant]
     Dosage: 25 MG, UNK
     Route: 048
  3. GAVISCON [Concomitant]
     Dosage: 40 ML, UNK
     Route: 048
  4. LACTULOSE [Concomitant]
     Dosage: 30 ML, UNK
     Route: 048
  5. LISINOPRIL [Concomitant]
     Dosage: 2.5 MG, UNK
     Route: 048
  6. OMEPRAZOLE [Concomitant]
     Dosage: 40 MG, UNK
     Route: 048

REACTIONS (2)
  - ARTHRALGIA [None]
  - BONE PAIN [None]
